FAERS Safety Report 24393659 (Version 2)
Quarter: 2024Q4

REPORT INFORMATION
  Report Type: Spontaneous
  Country: US (occurrence: US)
  Receive Date: 20241003
  Receipt Date: 20241115
  Transmission Date: 20250115
  Serious: No
  Sender: EISAI
  Company Number: US-Eisai-EC-2024-175051

PATIENT
  Age: 66 Year
  Sex: Female

DRUGS (6)
  1. LEQEMBI [Suspect]
     Active Substance: LECANEMAB-IRMB
     Indication: Dementia Alzheimer^s type
     Route: 042
     Dates: start: 20240430
  2. CELEBREX [Concomitant]
     Active Substance: CELECOXIB
  3. CELEXA [Concomitant]
     Active Substance: CITALOPRAM HYDROBROMIDE
  4. FOSAMAX [Concomitant]
     Active Substance: ALENDRONATE SODIUM
  5. PRAVASTATIN [Concomitant]
     Active Substance: PRAVASTATIN
  6. TRAZODONE [Concomitant]
     Active Substance: TRAZODONE HYDROCHLORIDE

REACTIONS (2)
  - Nausea [Not Recovered/Not Resolved]
  - Arthritis [Not Recovered/Not Resolved]

NARRATIVE: CASE EVENT DATE: 20240101
